FAERS Safety Report 19067263 (Version 1)
Quarter: 2021Q1

REPORT INFORMATION
  Report Type: Spontaneous
  Country: GB (occurrence: GB)
  Receive Date: 20210329
  Receipt Date: 20210329
  Transmission Date: 20210420
  Serious: Yes (Other)
  Sender: FDA-Public Use
  Company Number: GB-AUROBINDO-AUR-APL-2021-011920

PATIENT
  Sex: Female
  Weight: 46.26 kg

DRUGS (2)
  1. SYMBICORT [Suspect]
     Active Substance: BUDESONIDE\FORMOTEROL FUMARATE DIHYDRATE
     Indication: HYPERTENSION
     Dosage: 50 MILLIGRAM, TWO TIMES A DAY
     Route: 055
     Dates: start: 20160503
  2. BISOPROLOL [Suspect]
     Active Substance: BISOPROLOL
     Indication: BLOOD PRESSURE INADEQUATELY CONTROLLED
     Dosage: 1.25 MILLIGRAM
     Route: 048
     Dates: start: 20190328

REACTIONS (2)
  - Medication error [Unknown]
  - Adverse drug reaction [Recovered/Resolved with Sequelae]

NARRATIVE: CASE EVENT DATE: 20160707
